FAERS Safety Report 5348895-1 (Version None)
Quarter: 2007Q2

REPORT INFORMATION
  Report Type: 
  Country: None (occurrence: None)
  Receive Date: 20070607
  Receipt Date: 20070604
  Transmission Date: 20071010
  Serious: Yes (Death)
  Sender: FDA-Public Use
  Company Number: PHBS2007MX09266

PATIENT

DRUGS (1)
  1. ZELMAC [Suspect]
     Route: 065

REACTIONS (1)
  - DEATH [None]
